FAERS Safety Report 11647717 (Version 1)
Quarter: 2015Q4

REPORT INFORMATION
  Report Type: Spontaneous
  Country: US (occurrence: None)
  Receive Date: 20151020
  Receipt Date: 20151020
  Transmission Date: 20160304
  Serious: Yes (Hospitalization)
  Sender: FDA-Public Use
  Company Number: None

PATIENT
  Age: 66 Year
  Sex: Male
  Weight: 105.1 kg

DRUGS (1)
  1. DABIGATRAN [Suspect]
     Active Substance: DABIGATRAN
     Indication: ATRIAL FIBRILLATION
     Route: 048
     Dates: start: 20150319, end: 20151001

REACTIONS (4)
  - Acute kidney injury [None]
  - Contraindicated drug administered [None]
  - Refusal of treatment by patient [None]
  - Laboratory test abnormal [None]

NARRATIVE: CASE EVENT DATE: 20151001
